FAERS Safety Report 4407182-6 (Version None)
Quarter: 2004Q3

REPORT INFORMATION
  Report Type: 
  Country: None (occurrence: None)
  Receive Date: 20040723
  Receipt Date: 20040723
  Transmission Date: 20050211
  Serious: Yes (Other)
  Sender: FDA-Public Use
  Company Number: None

PATIENT
  Age: 65 Year
  Sex: Male
  Weight: 93.9 kg

DRUGS (12)
  1. SPIRONOLACTONE [Suspect]
  2. RAMIPRIL [Concomitant]
  3. FUROSEMIDE [Concomitant]
  4. TAMSULOSIN HCL [Concomitant]
  5. METFORMIN HCL [Concomitant]
  6. TRAMADOL HCL [Concomitant]
  7. CLOPIDOGREL BISULFATE [Concomitant]
  8. SIMETHICONE [Concomitant]
  9. CARVEDILOL [Concomitant]
  10. MAGNESIUM OXIDE [Concomitant]
  11. SPIRONOLACTONE [Concomitant]
  12. HYDROXYPROPYL ME CELLULOSE [Concomitant]

REACTIONS (1)
  - GYNAECOMASTIA [None]
